FAERS Safety Report 10923295 (Version 1)
Quarter: 2015Q1

REPORT INFORMATION
  Report Type: Spontaneous
  Country: FR (occurrence: FR)
  Receive Date: 20150318
  Receipt Date: 20150318
  Transmission Date: 20150721
  Serious: Yes (Hospitalization)
  Sender: FDA-Public Use
  Company Number: FR-ROCHE-1550479

PATIENT
  Age: 3 Year
  Sex: Female
  Weight: 31.3 kg

DRUGS (6)
  1. CELLCEPT [Interacting]
     Active Substance: MYCOPHENOLATE MOFETIL\MYCOPHENOLATE MOFETIL HYDROCHLORIDE
     Route: 048
     Dates: start: 20140722, end: 20140923
  2. CELLCEPT [Interacting]
     Active Substance: MYCOPHENOLATE MOFETIL\MYCOPHENOLATE MOFETIL HYDROCHLORIDE
     Route: 048
     Dates: start: 20141016, end: 20141118
  3. CELLCEPT [Interacting]
     Active Substance: MYCOPHENOLATE MOFETIL\MYCOPHENOLATE MOFETIL HYDROCHLORIDE
     Route: 048
     Dates: start: 20140923, end: 20141016
  4. PROGRAF [Interacting]
     Active Substance: TACROLIMUS\TACROLIMUS ANHYDROUS
     Indication: RENAL TRANSPLANT
     Route: 048
     Dates: start: 20140722, end: 20150105
  5. CELLCEPT [Suspect]
     Active Substance: MYCOPHENOLATE MOFETIL\MYCOPHENOLATE MOFETIL HYDROCHLORIDE
     Indication: RENAL TRANSPLANT
     Route: 048
     Dates: start: 20141118, end: 20141231
  6. ROVALCYTE [Concomitant]
     Active Substance: VALGANCICLOVIR HYDROCHLORIDE
     Route: 065
     Dates: start: 20140722

REACTIONS (7)
  - Gastrointestinal disorder [Recovered/Resolved]
  - Drug interaction [Unknown]
  - Neutropenia [Recovering/Resolving]
  - Diarrhoea [Recovered/Resolved]
  - Nausea [Recovered/Resolved]
  - Aphthous stomatitis [Not Recovered/Not Resolved]
  - Escherichia infection [Recovered/Resolved]

NARRATIVE: CASE EVENT DATE: 20140923
